FAERS Safety Report 25204102 (Version 1)
Quarter: 2025Q2

REPORT INFORMATION
  Report Type: Spontaneous
  Country: US (occurrence: US)
  Receive Date: 20250416
  Receipt Date: 20250416
  Transmission Date: 20250717
  Serious: No
  Sender: ABBVIE
  Company Number: US-ABBVIE-6223156

PATIENT
  Age: 56 Year
  Sex: Female
  Weight: 98.883 kg

DRUGS (1)
  1. OXYTROL FOR WOMEN [Suspect]
     Active Substance: OXYBUTYNIN
     Indication: Micturition urgency
     Dosage: FORM STRENGTH: 3.9 MG
     Route: 062
     Dates: start: 20250329, end: 20250402

REACTIONS (4)
  - Administration site discomfort [Recovering/Resolving]
  - Administration site pruritus [Recovering/Resolving]
  - Administration site papule [Recovering/Resolving]
  - Administration site erythema [Recovering/Resolving]

NARRATIVE: CASE EVENT DATE: 20250401
